FAERS Safety Report 7540110-3 (Version None)
Quarter: 2011Q2

REPORT INFORMATION
  Report Type: 
  Country: None (occurrence: None)
  Receive Date: 20110610
  Receipt Date: 20110531
  Transmission Date: 20111010
  Serious: Yes (Other)
  Sender: FDA-Public Use
  Company Number: KR-ASTRAZENECA-2011SE33869

PATIENT
  Age: 69 Year
  Sex: Male
  Weight: 60 kg

DRUGS (2)
  1. LIDOCAINE [Suspect]
  2. PROPOFOL [Concomitant]
     Route: 042

REACTIONS (1)
  - SICK SINUS SYNDROME [None]
